FAERS Safety Report 4751206-3 (Version None)
Quarter: 2005Q3

REPORT INFORMATION
  Report Type: 
  Country: None (occurrence: None)
  Receive Date: 20050822
  Receipt Date: 20050811
  Transmission Date: 20060218
  Serious: Yes (Other)
  Sender: FDA-Public Use
  Company Number: 2005-08-0729

PATIENT
  Age: 72 Year
  Sex: Female
  Weight: 73 kg

DRUGS (4)
  1. MOMETASONE FUROATE [Suspect]
     Indication: NASAL POLYPS
     Dosage: 400 MCG/DAY NASAL SPRAY
     Route: 045
     Dates: start: 20050720, end: 20050725
  2. FLUTICASONE [Concomitant]
  3. VERAPAMIL [Concomitant]
  4. BRUFEN [Concomitant]

REACTIONS (2)
  - HEADACHE [None]
  - HYPERTENSION [None]
